FAERS Safety Report 4311573-1 (Version None)
Quarter: 2004Q1

REPORT INFORMATION
  Report Type: 
  Country: None (occurrence: None)
  Receive Date: 20040302
  Receipt Date: 20040116
  Transmission Date: 20041129
  Serious: No
  Sender: FDA-Public Use
  Company Number: 200326066BWH

PATIENT
  Age: 77 Year
  Sex: Male
  Weight: 81.6475 kg

DRUGS (10)
  1. LEVITRA [Suspect]
     Indication: ERECTILE DYSFUNCTION
     Dosage: 10 MG, PRN, ORAL
     Route: 048
     Dates: start: 20031016
  2. FUROSEMIDE [Concomitant]
  3. COUMADIN [Concomitant]
  4. ACCUPRIL [Concomitant]
  5. NORVASC [Concomitant]
  6. HUMALOG [Concomitant]
  7. CLONIDINE [Concomitant]
  8. PENTOXIFYLLINE [Concomitant]
  9. LANTUS [Concomitant]
  10. EPOGEN [Concomitant]

REACTIONS (2)
  - ERECTILE DYSFUNCTION [None]
  - PHOTOPSIA [None]
